FAERS Safety Report 7088719-8 (Version None)
Quarter: 2010Q4

REPORT INFORMATION
  Report Type: 
  Country: None (occurrence: None)
  Receive Date: 20101108
  Receipt Date: 20101008
  Transmission Date: 20110411
  Serious: No
  Sender: FDA-Public Use
  Company Number: US-BAYER-201036763NA

PATIENT
  Sex: Male

DRUGS (1)
  1. MIRENA [Suspect]
     Route: 015

REACTIONS (1)
  - PENIS INJURY [None]
